FAERS Safety Report 23386472 (Version 1)
Quarter: 2024Q1

REPORT INFORMATION
  Report Type: Spontaneous
  Country: PL (occurrence: PL)
  Receive Date: 20240110
  Receipt Date: 20240110
  Transmission Date: 20240409
  Serious: Yes (Hospitalization)
  Sender: FDA-Public Use
  Company Number: None

PATIENT
  Age: 61 Year
  Sex: Male
  Weight: 54 kg

DRUGS (1)
  1. PACLITAXEL [Suspect]
     Active Substance: PACLITAXEL
     Indication: Gastric cancer
     Dosage: VIAL CONTAINS 100 MG
     Dates: start: 20190416, end: 20190416

REACTIONS (5)
  - Escherichia sepsis [Recovering/Resolving]
  - Septic shock [Recovering/Resolving]
  - Biliary tract infection [Recovering/Resolving]
  - Neutropenia [Recovering/Resolving]
  - Enterococcal sepsis [Recovering/Resolving]

NARRATIVE: CASE EVENT DATE: 20190422
